FAERS Safety Report 8304636-7 (Version None)
Quarter: 2012Q2

REPORT INFORMATION
  Report Type: 
  Country: None (occurrence: None)
  Receive Date: 20120423
  Receipt Date: 20120413
  Transmission Date: 20120825
  Serious: No
  Sender: FDA-Public Use
  Company Number: US-PFIZER INC-2012093705

PATIENT
  Sex: Male
  Weight: 68.027 kg

DRUGS (6)
  1. TETRACYCLINE HCL [Suspect]
     Dosage: UNK
  2. LATANOPROST [Suspect]
     Indication: HEADACHE
     Dosage: 1 DF, 1X/DAY OU
     Dates: start: 20111223, end: 20111224
  3. TRAVATAN Z [Suspect]
     Indication: DYSURIA
     Dosage: 1 DF, 1X/DAY
     Dates: start: 20080122, end: 20080124
  4. FLEXIN [Suspect]
  5. TRAVATAN [Suspect]
     Indication: DYSURIA
     Dosage: 1 DF, 1X/DAY OU
     Dates: start: 20080122, end: 20080124
  6. LUMIGAN [Suspect]
     Dosage: UNK

REACTIONS (1)
  - DRUG HYPERSENSITIVITY [None]
